FAERS Safety Report 13641024 (Version 1)
Quarter: 2017Q2

REPORT INFORMATION
  Report Type: Spontaneous
  Country: CA (occurrence: CA)
  Receive Date: 20170612
  Receipt Date: 20170612
  Transmission Date: 20170830
  Serious: Yes (Disabling)
  Sender: FDA-Public Use
  Company Number: CA-ORION CORPORATION ORION PHARMA-TREX2016-0452

PATIENT
  Age: 62 Year
  Sex: Female

DRUGS (5)
  1. FOLIC ACID. [Suspect]
     Active Substance: FOLIC ACID
     Route: 065
  2. METHOTREXATE (TRADE NAME UNKNOWN) [Suspect]
     Active Substance: METHOTREXATE
     Route: 065
  3. XELJANZ [Suspect]
     Active Substance: TOFACITINIB CITRATE
     Route: 048
     Dates: start: 20160317
  4. TYLENOL ARTHRITIS PAIN [Concomitant]
     Active Substance: ACETAMINOPHEN
     Route: 065
  5. XELJANZ [Suspect]
     Active Substance: TOFACITINIB CITRATE
     Indication: RHEUMATOID ARTHRITIS
     Route: 048
     Dates: start: 20160209, end: 20160301

REACTIONS (11)
  - Abdominal discomfort [Not Recovered/Not Resolved]
  - Sinusitis [Not Recovered/Not Resolved]
  - Foot deformity [Unknown]
  - Weight increased [Not Recovered/Not Resolved]
  - Hand deformity [Unknown]
  - Skin papilloma [Unknown]
  - Oral herpes [Recovering/Resolving]
  - Weight decreased [Unknown]
  - Joint injury [Not Recovered/Not Resolved]
  - Bronchitis [Not Recovered/Not Resolved]
  - Fungal skin infection [Unknown]

NARRATIVE: CASE EVENT DATE: 201510
